FAERS Safety Report 11084412 (Version 1)
Quarter: 2015Q2

REPORT INFORMATION
  Report Type: Spontaneous
  Country: US (occurrence: US)
  Receive Date: 20150502
  Receipt Date: 20150502
  Transmission Date: 20150821
  Serious: Yes (Other)
  Sender: FDA-Public Use
  Company Number: US-AUROBINDO-AUR-APL-2015-03670

PATIENT
  Age: 17 Year
  Sex: Female

DRUGS (1)
  1. TOPIRAMATE 25MG [Suspect]
     Active Substance: TOPIRAMATE
     Indication: MIGRAINE WITH AURA
     Dosage: 25 MG, TWO TIMES A DAY
     Route: 065

REACTIONS (5)
  - Eating disorder [Unknown]
  - Purging [Unknown]
  - Binge eating [Unknown]
  - Drug abuse [Unknown]
  - Weight decreased [Unknown]
